FAERS Safety Report 20612324 (Version 1)
Quarter: 2022Q1

REPORT INFORMATION
  Report Type: Report from Study
  Country: CA (occurrence: CA)
  Receive Date: 20220318
  Receipt Date: 20220318
  Transmission Date: 20220424
  Serious: Yes (Other)
  Sender: FDA-Public Use
  Company Number: CA-HLS-202200342

PATIENT
  Sex: Male

DRUGS (2)
  1. CLOZARIL [Suspect]
     Active Substance: CLOZAPINE
     Indication: Product used for unknown indication
     Route: 048
     Dates: start: 20131018, end: 20220117
  2. CLOZARIL [Suspect]
     Active Substance: CLOZAPINE
     Indication: Product used for unknown indication
     Dosage: CLOZARIL DOSAGE WAS LOWERED ON 13-OCT-2021 FROM 200MG TO 150MG AND TREATMENT.
     Route: 048
     Dates: end: 20220124

REACTIONS (2)
  - Drug ineffective [Unknown]
  - Treatment noncompliance [Unknown]
